FAERS Safety Report 4555897-1 (Version None)
Quarter: 2005Q1

REPORT INFORMATION
  Report Type: 
  Country: None (occurrence: None)
  Receive Date: 20050119
  Receipt Date: 20050107
  Transmission Date: 20050727
  Serious: Yes (Other)
  Sender: FDA-Public Use
  Company Number: PHBS2005JP00737

PATIENT
  Sex: Female
  Weight: 2 kg

DRUGS (1)
  1. HYDRALAZINE HCL [Suspect]
     Route: 064

REACTIONS (4)
  - APNOEA [None]
  - CAESAREAN SECTION [None]
  - DRUG EXPOSURE DURING PREGNANCY [None]
  - NEONATAL APNOEIC ATTACK [None]
